FAERS Safety Report 8995958 (Version 1)
Quarter: 2013Q1

REPORT INFORMATION
  Report Type: Spontaneous
  Country: US (occurrence: US)
  Receive Date: 20130103
  Receipt Date: 20130103
  Transmission Date: 20140127
  Serious: No
  Sender: FDA-Public Use
  Company Number: US-ABBOTT-12P-163-0938432-00

PATIENT
  Age: 41 Year
  Sex: Female
  Weight: 69.46 kg

DRUGS (1)
  1. SYNTHROID [Suspect]
     Indication: HYPOTHYROIDISM
     Dosage: 100 MCG DAILY
     Dates: start: 2007

REACTIONS (1)
  - Coeliac disease [Not Recovered/Not Resolved]
